FAERS Safety Report 18704767 (Version 1)
Quarter: 2021Q1

REPORT INFORMATION
  Report Type: Report from Study
  Country: None (occurrence: US)
  Receive Date: 20210105
  Receipt Date: 20210105
  Transmission Date: 20210419
  Serious: Yes (Hospitalization)
  Sender: FDA-Public Use
  Company Number: US-ABBVIE-21K-163-3715765-00

PATIENT
  Age: 60 Year
  Sex: Male

DRUGS (3)
  1. CREON [Suspect]
     Active Substance: PANCRELIPASE AMYLASE\PANCRELIPASE LIPASE\PANCRELIPASE PROTEASE
     Indication: PANCREATITIS
     Dosage: 3 CAPSULES PER MEAL
     Route: 048
     Dates: end: 20201225
  2. CITALOPRAM [Concomitant]
     Active Substance: CITALOPRAM HYDROBROMIDE
     Indication: PRODUCT USED FOR UNKNOWN INDICATION
  3. METOPROLOL. [Concomitant]
     Active Substance: METOPROLOL
     Indication: PRODUCT USED FOR UNKNOWN INDICATION

REACTIONS (7)
  - Haematemesis [Unknown]
  - Lipase increased [Not Recovered/Not Resolved]
  - Gastric haemorrhage [Not Recovered/Not Resolved]
  - Illness [Unknown]
  - Pyrexia [Unknown]
  - Syncope [Recovered/Resolved]
  - Chills [Unknown]

NARRATIVE: CASE EVENT DATE: 20201225
